FAERS Safety Report 18415248 (Version 1)
Quarter: 2020Q4

REPORT INFORMATION
  Report Type: Spontaneous
  Country: US (occurrence: US)
  Receive Date: 20201022
  Receipt Date: 20201022
  Transmission Date: 20210114
  Serious: Yes (Hospitalization)
  Sender: FDA-Public Use
  Company Number: None

PATIENT
  Age: 42 Year
  Sex: Male

DRUGS (1)
  1. NAPROXEN (NAPROXEN 500 MG TAB) [Suspect]
     Active Substance: NAPROXEN
     Dates: start: 20190319

REACTIONS (1)
  - Duodenal ulcer [None]

NARRATIVE: CASE EVENT DATE: 20200528
